FAERS Safety Report 9713509 (Version 1)
Quarter: 2013Q4

REPORT INFORMATION
  Report Type: Spontaneous
  Country: US (occurrence: US)
  Receive Date: 20131126
  Receipt Date: 20131126
  Transmission Date: 20140711
  Serious: Yes (Other)
  Sender: FDA-Public Use
  Company Number: US-BAXTER-2013BAX046276

PATIENT
  Sex: Male

DRUGS (4)
  1. GAMMAGARD LIQUID [Suspect]
     Indication: IMMUNOMODULATORY THERAPY
     Dosage: 2 GM/KG
  2. GAMMAGARD LIQUID [Suspect]
     Indication: OFF LABEL USE
  3. DEXAMETHASONE [Concomitant]
     Indication: IMMUNOMODULATORY THERAPY
  4. MYCOPHENOLATE MOFETIL [Concomitant]
     Indication: IMMUNOMODULATORY THERAPY

REACTIONS (1)
  - Drug ineffective [Not Recovered/Not Resolved]
